FAERS Safety Report 6390682-X (Version None)
Quarter: 2009Q4

REPORT INFORMATION
  Report Type: 
  Country: None (occurrence: None)
  Receive Date: 20091003
  Receipt Date: 20090916
  Transmission Date: 20100525
  Serious: Yes (Hospitalization)
  Sender: FDA-Public Use
  Company Number: 8052393

PATIENT
  Age: 61 Year
  Sex: Male

DRUGS (4)
  1. METHYLPHENIDATE HCL [Suspect]
     Indication: TRAUMATIC BRAIN INJURY
     Dosage: 10 MG 2/D
     Dates: start: 20090428, end: 20090501
  2. METHYLPHENIDATE HCL [Suspect]
     Indication: TRAUMATIC BRAIN INJURY
     Dosage: 30 MG /D
     Dates: start: 20090501
  3. METHYLPHENIDATE HCL [Suspect]
     Indication: TRAUMATIC BRAIN INJURY
     Dosage: 10 MG 3/D
     Dates: start: 20060201, end: 20060101
  4. METHYLPHENIDATE HCL [Suspect]
     Indication: TRAUMATIC BRAIN INJURY
     Dosage: 20 MG 3/D
     Dates: start: 20060101, end: 20071201

REACTIONS (9)
  - APATHY [None]
  - BALANCE DISORDER [None]
  - CONSCIOUSNESS FLUCTUATING [None]
  - DEPRESSED LEVEL OF CONSCIOUSNESS [None]
  - DYSTONIA [None]
  - FATIGUE [None]
  - HYPERTENSION [None]
  - HYPOTENSION [None]
  - OFF LABEL USE [None]
